FAERS Safety Report 14824305 (Version 2)
Quarter: 2018Q2

REPORT INFORMATION
  Report Type: Spontaneous
  Country: US (occurrence: US)
  Receive Date: 20180429
  Receipt Date: 20180518
  Transmission Date: 20180711
  Serious: No
  Sender: FDA-Public Use
  Company Number: US-JNJFOC-20180415648

PATIENT
  Age: 34 Year
  Sex: Male
  Weight: 86.18 kg

DRUGS (4)
  1. STELARA [Suspect]
     Active Substance: USTEKINUMAB
     Indication: PSORIASIS
     Route: 058
     Dates: start: 20171219, end: 20171219
  2. IBUPROFEN. [Concomitant]
     Active Substance: IBUPROFEN
     Route: 065
  3. CLOBETASOL [Concomitant]
     Active Substance: CLOBETASOL
     Dosage: TOPICAL
     Route: 061
  4. BENZACLIN [Concomitant]
     Active Substance: BENZOYL PEROXIDE\CLINDAMYCIN PHOSPHATE
     Dosage: TOPICAL
     Route: 061

REACTIONS (3)
  - Hypoaesthesia [Recovered/Resolved]
  - Acne [Recovered/Resolved]
  - Abnormal weight gain [Recovered/Resolved]

NARRATIVE: CASE EVENT DATE: 20171219
